FAERS Safety Report 16786073 (Version 1)
Quarter: 2019Q4

REPORT INFORMATION
  Report Type: Spontaneous
  Country: US (occurrence: US)
  Receive Date: 20190908
  Receipt Date: 20190908
  Transmission Date: 20200122
  Serious: Yes (Other)
  Sender: FDA-Public Use
  Company Number: None

PATIENT
  Age: 55 Year
  Sex: Female
  Weight: 105.3 kg

DRUGS (1)
  1. FENTANYL 50 MCG [Suspect]
     Active Substance: FENTANYL

REACTIONS (4)
  - Drug withdrawal syndrome [None]
  - Product substitution issue [None]
  - Manufacturing materials issue [None]
  - Drug ineffective [None]

NARRATIVE: CASE EVENT DATE: 20190908
